FAERS Safety Report 10571994 (Version 3)
Quarter: 2015Q2

REPORT INFORMATION
  Report Type: Report from Study
  Country: US (occurrence: US)
  Receive Date: 20141107
  Receipt Date: 20150603
  Transmission Date: 20150821
  Serious: Yes (Death, Life-Threatening, Hospitalization, Other)
  Sender: FDA-Public Use
  Company Number: US-TAKEDA-2014MPI002892

PATIENT
  Age: 65 Year
  Sex: Male
  Weight: 98.87 kg

DRUGS (3)
  1. VELCADE [Suspect]
     Active Substance: BORTEZOMIB
     Indication: PLASMA CELL MYELOMA
     Dosage: 3 MG, UNK
     Route: 042
     Dates: start: 20100712, end: 20110110
  2. DEXAMETHASONE. [Suspect]
     Active Substance: DEXAMETHASONE
     Indication: PLASMA CELL MYELOMA
     Dosage: 10 MG, UNK
     Route: 042
     Dates: start: 20100712, end: 20110110
  3. MELPHALAN [Suspect]
     Active Substance: MELPHALAN
     Indication: STEM CELL TRANSPLANT
     Dosage: 100 MG/M2, UNK
     Route: 042
     Dates: start: 20110305, end: 20110307

REACTIONS (11)
  - Contusion [Not Recovered/Not Resolved]
  - Adult T-cell lymphoma/leukaemia [Recovered/Resolved]
  - Aplasia pure red cell [Fatal]
  - Myelodysplastic syndrome [Unknown]
  - Azotaemia [Recovered/Resolved]
  - Blood culture positive [Unknown]
  - Pancytopenia [Fatal]
  - Fall [Not Recovered/Not Resolved]
  - Acute kidney injury [Unknown]
  - Autoimmune haemolytic anaemia [Fatal]
  - Refractory cytopenia with unilineage dysplasia [Unknown]

NARRATIVE: CASE EVENT DATE: 201103
